FAERS Safety Report 19012161 (Version 1)
Quarter: 2021Q1

REPORT INFORMATION
  Report Type: Spontaneous
  Country: US (occurrence: US)
  Receive Date: 20210316
  Receipt Date: 20210316
  Transmission Date: 20210420
  Serious: No
  Sender: FDA-Public Use
  Company Number: US-SA-2021SA086206

PATIENT
  Age: 46 Year
  Sex: Male

DRUGS (1)
  1. DUPIXENT [Suspect]
     Active Substance: DUPILUMAB
     Indication: NASAL POLYPS
     Dosage: DRUG STRUCTURE DOSAGE : 300MG DRUG INTERVAL DOSAGE : Q 2 WEEKS DRUG TREATMENT DURATION: SEP2020
     Route: 058
     Dates: start: 20200905

REACTIONS (3)
  - COVID-19 [Unknown]
  - Influenza like illness [Recovered/Resolved]
  - SARS-CoV-2 test positive [Unknown]

NARRATIVE: CASE EVENT DATE: 20210301
